FAERS Safety Report 9505944 (Version 1)
Quarter: 2013Q1

REPORT INFORMATION
  Report Type: Spontaneous
  Country: US (occurrence: None)
  Receive Date: 20130305
  Receipt Date: 20130305
  Transmission Date: 20140127
  Serious: No
  Sender: FDA-Public Use
  Company Number: 1000040165

PATIENT
  Age: 69 Year
  Sex: Male

DRUGS (4)
  1. DALIRESP [Suspect]
     Indication: CHRONIC OBSTRUCTIVE PULMONARY DISEASE
     Dates: start: 201110, end: 201110
  2. SYMBICORT (BUDESONIDE W/ FORMOTEROL FUMARATE) [Concomitant]
  3. SPIRIVA (TIOTROPIUM) [Concomitant]
  4. PREVACID (LANSOPRAZOLE) [Concomitant]

REACTIONS (1)
  - Headache [None]
